FAERS Safety Report 9103184 (Version 1)
Quarter: 2013Q1

REPORT INFORMATION
  Report Type: Spontaneous
  Country: TR (occurrence: TR)
  Receive Date: 20130219
  Receipt Date: 20130219
  Transmission Date: 20140127
  Serious: Yes (Hospitalization)
  Sender: FDA-Public Use
  Company Number: PHHY2013TR015355

PATIENT
  Age: 11 Year
  Sex: Female
  Weight: 23 kg

DRUGS (3)
  1. EXJADE [Suspect]
     Indication: IRON OVERLOAD
     Dosage: 625 UNK, DAILY
     Route: 048
     Dates: start: 2009, end: 20130121
  2. FOLBIOL [Concomitant]
     Dosage: 1 DF, DAILY
     Route: 048
     Dates: start: 2003, end: 20130121
  3. ZINC [Concomitant]
     Dosage: 2 DF, DAILY
     Route: 048
     Dates: start: 2011

REACTIONS (7)
  - Back pain [Recovered/Resolved]
  - Hypophagia [Recovered/Resolved]
  - Syncope [Recovered/Resolved]
  - Muscle contractions involuntary [Recovered/Resolved]
  - Abdominal pain [Recovered/Resolved]
  - Nausea [Recovered/Resolved]
  - Vomiting [Recovered/Resolved]
